FAERS Safety Report 9727749 (Version 1)
Quarter: 2013Q4

REPORT INFORMATION
  Report Type: Spontaneous
  Country: US (occurrence: US)
  Receive Date: 20131203
  Receipt Date: 20131203
  Transmission Date: 20140711
  Serious: No
  Sender: FDA-Public Use
  Company Number: US-ENDO PHARMACEUTICALS INC.-AMIT20120032

PATIENT
  Sex: 0

DRUGS (4)
  1. AMITRIPTYLINE HCL 100MG (AMITRIPTYLINE HYDROCHLORIDE) (100 MILLIGRAM, TABLETS) (AMITRIPTYLINE HYDROCHLORIDE) [Suspect]
     Indication: MIGRAINE PROPHYLAXIS
     Route: 048
     Dates: start: 20120921
  2. AMITRIPTYLINE HCL 100MG (AMITRIPTYLINE HYDROCHLORIDE) (100 MILLIGRAM, TABLETS) (AMITRIPTYLINE HYDROCHLORIDE) [Suspect]
     Indication: FIBROMYALGIA
  3. AMITRIPTYLINE HCL 100MG (AMITRIPTYLINE HYDROCHLORIDE) (100 MILLIGRAM, TABLETS) (AMITRIPTYLINE HYDROCHLORIDE) [Concomitant]
     Indication: MIGRAINE PROPHYLAXIS
     Route: 048
     Dates: start: 20080520, end: 20120920
  4. AMITRIPTYLINE HCL 100MG (AMITRIPTYLINE HYDROCHLORIDE) (100 MILLIGRAM, TABLETS) (AMITRIPTYLINE HYDROCHLORIDE) [Concomitant]
     Indication: FIBROMYALGIA

REACTIONS (2)
  - Nocturia [Not Recovered/Not Resolved]
  - Drug ineffective for unapproved indication [Not Recovered/Not Resolved]
